FAERS Safety Report 12839935 (Version 1)
Quarter: 2016Q4

REPORT INFORMATION
  Report Type: Spontaneous
  Country: US (occurrence: US)
  Receive Date: 20161012
  Receipt Date: 20161012
  Transmission Date: 20170207
  Serious: No
  Sender: FDA-Public Use
  Company Number: US-SHIRE-US201614513

PATIENT
  Sex: Male

DRUGS (4)
  1. VYVANSE [Suspect]
     Active Substance: LISDEXAMFETAMINE DIMESYLATE
     Indication: DRUG ABUSE
     Dosage: UNK, UNKNOWN
     Route: 048
  2. FOCALIN [Suspect]
     Active Substance: DEXMETHYLPHENIDATE HYDROCHLORIDE
     Indication: DRUG ABUSE
     Dosage: UNK, UNKNOWN
     Route: 065
  3. RITALIN [Suspect]
     Active Substance: METHYLPHENIDATE HYDROCHLORIDE
     Indication: DRUG ABUSE
     Dosage: UNK, UNKNOWN
     Route: 065
  4. ADDERALL XR [Suspect]
     Active Substance: AMPHETAMINE ASPARTATE\AMPHETAMINE SULFATE\DEXTROAMPHETAMINE SACCHARATE\DEXTROAMPHETAMINE SULFATE
     Indication: DRUG ABUSE
     Dosage: UNK, UNKNOWN
     Route: 048

REACTIONS (3)
  - Drug diversion [Unknown]
  - Feeling hot [Unknown]
  - Psychomotor hyperactivity [Unknown]
